FAERS Safety Report 10096775 (Version 1)
Quarter: 2014Q2

REPORT INFORMATION
  Report Type: Spontaneous
  Country: US (occurrence: US)
  Receive Date: 20140422
  Receipt Date: 20140422
  Transmission Date: 20141212
  Serious: Yes (Other)
  Sender: FDA-Public Use
  Company Number: CHPA2014US005518

PATIENT
  Age: 65 Year
  Sex: Female

DRUGS (2)
  1. EXCEDRIN EXTRA STRENGTH [Suspect]
     Indication: PAIN
     Dosage: 2 AT A TIME ABOUT 6 PER DAY
     Route: 048
  2. DIURETICS [Concomitant]

REACTIONS (2)
  - Liver disorder [Recovered/Resolved]
  - Gastric haemorrhage [Recovered/Resolved]
